FAERS Safety Report 5509944-0 (Version None)
Quarter: 2007Q4

REPORT INFORMATION
  Report Type: 
  Country: None (occurrence: None)
  Receive Date: 20071108
  Receipt Date: 20071102
  Transmission Date: 20080405
  Serious: Yes (Other)
  Sender: FDA-Public Use
  Company Number: SE-AVENTIS-200715150EU

PATIENT
  Sex: Female

DRUGS (1)
  1. KLEXANE                            /01708202/ [Suspect]
     Route: 058

REACTIONS (2)
  - SPINAL CORD HAEMORRHAGE [None]
  - SUBARACHNOID HAEMORRHAGE [None]
